FAERS Safety Report 24658878 (Version 1)
Quarter: 2024Q4

REPORT INFORMATION
  Report Type: Spontaneous
  Country: US (occurrence: None)
  Receive Date: 20241123
  Receipt Date: 20241123
  Transmission Date: 20250115
  Serious: Yes (unspecified)
  Sender: Public
  Company Number: None

PATIENT
  Age: 62 Year
  Sex: Female

DRUGS (1)
  1. CAPECITABINE [Suspect]
     Active Substance: CAPECITABINE
     Indication: Breast mass
     Dosage: OTHER QUANTITY : 500 MG X 3 TABLETS;?OTHER FREQUENCY : BID 7 ON 7 OFF FOR 28 DAY CYCLE;?

REACTIONS (1)
  - Metastasis [None]
